FAERS Safety Report 21986975 (Version 2)
Quarter: 2023Q1

REPORT INFORMATION
  Report Type: Report from Study
  Country: BR (occurrence: BR)
  Receive Date: 20230213
  Receipt Date: 20230224
  Transmission Date: 20230417
  Serious: Yes (Hospitalization, Other)
  Sender: FDA-Public Use
  Company Number: BR-BIOGEN-2023BI01185305

PATIENT
  Age: 1 Year
  Sex: Female
  Weight: 7.37 kg

DRUGS (12)
  1. NUSINERSEN [Suspect]
     Active Substance: NUSINERSEN
     Indication: Spinal muscular atrophy
     Route: 050
     Dates: start: 20220914, end: 20220914
  2. NUSINERSEN [Suspect]
     Active Substance: NUSINERSEN
     Route: 050
     Dates: start: 20220928, end: 20220928
  3. NUSINERSEN [Suspect]
     Active Substance: NUSINERSEN
     Route: 050
     Dates: start: 20221014, end: 20221014
  4. NUSINERSEN [Suspect]
     Active Substance: NUSINERSEN
     Route: 050
     Dates: start: 20221116, end: 20221116
  5. NUSINERSEN [Suspect]
     Active Substance: NUSINERSEN
     Route: 050
     Dates: start: 20230130
  6. DIETARY SUPPLEMENT [Concomitant]
     Active Substance: DIETARY SUPPLEMENT
     Dosage: 120ML IN AN INFUSION PUMP FOR 2 HOURS (60ML/HOUR).
     Route: 050
  7. BUTYLSCOPOLAMINE BROMIDE [Concomitant]
     Active Substance: BUTYLSCOPOLAMINE BROMIDE
     Dosage: 10MG/ML, 7 DROPS
     Route: 050
  8. ATROPINE [Concomitant]
     Active Substance: ATROPINE
     Dosage: 1% 1 DROP
     Route: 050
  9. ERGOCALCIFEROL\RETINOL [Concomitant]
     Active Substance: ERGOCALCIFEROL\RETINOL
     Dosage: 50000+10000, 2DROPS
     Route: 050
  10. SIMETHICONE (DIMETHICONE) [Concomitant]
     Active Substance: DIMETHICONE
     Dosage: 75MG/ML (7 DROPS IF NECESSARY)
     Route: 050
  11. BROMOPRIDE [Concomitant]
     Active Substance: BROMOPRIDE
     Dosage: 4MG/ML (7 DROPS EVERY 8/8H, IF NECESSARY )
     Route: 050
  12. BROMOPRIDE [Concomitant]
     Active Substance: BROMOPRIDE
     Dosage: 200MG/ML (7 DROPS OF 6/6H, IF NECESSARY)
     Route: 050

REACTIONS (1)
  - Seizure [Unknown]

NARRATIVE: CASE EVENT DATE: 20230131
